FAERS Safety Report 4932224-9 (Version None)
Quarter: 2006Q1

REPORT INFORMATION
  Report Type: 
  Country: None (occurrence: None)
  Receive Date: 20060228
  Receipt Date: 20060210
  Transmission Date: 20060701
  Serious: Yes (Hospitalization)
  Sender: FDA-Public Use
  Company Number: 222502

PATIENT
  Age: 80 Year
  Sex: Female

DRUGS (1)
  1. AVASTIN [Suspect]
     Indication: COLON CANCER METASTATIC
     Dosage: 5 MG/KG, INTRAVENOUS
     Route: 042
     Dates: start: 20051001

REACTIONS (4)
  - COLON CANCER METASTATIC [None]
  - HYPOTHYROIDISM [None]
  - MALIGNANT NEOPLASM PROGRESSION [None]
  - THROMBOCYTOPENIC PURPURA [None]
